FAERS Safety Report 11112974 (Version 2)
Quarter: 2015Q2

REPORT INFORMATION
  Report Type: Spontaneous
  Country: US (occurrence: US)
  Receive Date: 20150514
  Receipt Date: 20150527
  Transmission Date: 20150821
  Serious: No
  Sender: FDA-Public Use
  Company Number: US-PFIZER INC-2015158749

PATIENT
  Sex: Female
  Weight: 59 kg

DRUGS (1)
  1. NEURONTIN [Suspect]
     Active Substance: GABAPENTIN
     Dosage: 75 MG, 2X/DAY
     Route: 048
     Dates: end: 2006

REACTIONS (1)
  - Drug ineffective [Unknown]
